FAERS Safety Report 8150996-X (Version None)
Quarter: 2012Q1

REPORT INFORMATION
  Report Type: 
  Country: None (occurrence: None)
  Receive Date: 20120220
  Receipt Date: 20120207
  Transmission Date: 20120608
  Serious: Yes (Hospitalization, Other)
  Sender: FDA-Public Use
  Company Number: US-ELI_LILLY_AND_COMPANY-US201103006899

PATIENT
  Sex: Female

DRUGS (5)
  1. FORTEO [Suspect]
     Dosage: 20 UG, QD
  2. FORTEO [Suspect]
     Dosage: 20 UG, QD
  3. VITAMIN D [Concomitant]
  4. FORTEO [Suspect]
     Indication: OSTEOPOROSIS
     Dosage: 20 UG, QD
     Dates: start: 20101101
  5. ASCORBIC ACID [Concomitant]

REACTIONS (6)
  - HIP FRACTURE [None]
  - INTENTIONAL DRUG MISUSE [None]
  - GAIT DISTURBANCE [None]
  - OEDEMA PERIPHERAL [None]
  - LIMB DISCOMFORT [None]
  - DYSKINESIA [None]
